FAERS Safety Report 4289932-5 (Version None)
Quarter: 2004Q1

REPORT INFORMATION
  Report Type: 
  Country: None (occurrence: None)
  Receive Date: 20040205
  Receipt Date: 20040130
  Transmission Date: 20041129
  Serious: Yes (Death, Disabling, Other)
  Sender: FDA-Public Use
  Company Number: DE-JNJFOC-20031201421

PATIENT
  Age: 87 Year
  Sex: Female

DRUGS (1)
  1. DURAGESIC [Suspect]
     Indication: PAIN
     Dosage: 100 UG/HR, 1 IN 1 TOTAL, TRANSDERMAL
     Route: 062
     Dates: start: 20020401, end: 20020401

REACTIONS (5)
  - DYSPNOEA [None]
  - HYPOXIC ENCEPHALOPATHY [None]
  - MULTI-ORGAN FAILURE [None]
  - PUPILLARY REFLEX IMPAIRED [None]
  - UNRESPONSIVE TO PAIN STIMULI [None]
